FAERS Safety Report 7750198-2 (Version None)
Quarter: 2011Q3

REPORT INFORMATION
  Report Type: 
  Country: None (occurrence: None)
  Receive Date: 20110912
  Receipt Date: 20110829
  Transmission Date: 20111222
  Serious: Yes (Death)
  Sender: FDA-Public Use
  Company Number: CN-ACCORD-010271

PATIENT
  Age: 4 Year
  Sex: Male

DRUGS (9)
  1. METHOTREXATE [Suspect]
     Indication: NATURAL KILLER-CELL LEUKAEMIA
  2. CYCLOPHOSPHAMIDE [Suspect]
     Indication: NATURAL KILLER-CELL LEUKAEMIA
     Route: 042
  3. ETOPOSIDE [Suspect]
     Indication: NATURAL KILLER-CELL LEUKAEMIA
     Dosage: 300.00-MG/M2-
     Route: 042
  4. L-ASPARAGINASE(L-ASPARAGINASE) [Suspect]
     Indication: NATURAL KILLER-CELL LEUKAEMIA
     Route: 042
  5. MITOXANTRONE [Suspect]
     Indication: NATURAL KILLER-CELL LEUKAEMIA
     Dosage: 10.00-MG/M2-
     Route: 042
  6. CYTARABINE [Suspect]
     Indication: NATURAL KILLER-CELL LEUKAEMIA
  7. MERCAPTOPURINE [Suspect]
     Indication: NATURAL KILLER-CELL LEUKAEMIA
     Dosage: 50.00-MG/M2-
     Route: 048
  8. DEXAMETHASONE [Suspect]
     Indication: NATURAL KILLER-CELL LEUKAEMIA
     Dosage: 6.00-MG/M2-
     Route: 048
  9. VINCRISTINE [Suspect]
     Indication: NATURAL KILLER-CELL LEUKAEMIA
     Dosage: 1.50-MG/M2-
     Route: 042

REACTIONS (1)
  - PNEUMONIA [None]
